FAERS Safety Report 6189589-2 (Version None)
Quarter: 2009Q2

REPORT INFORMATION
  Report Type: 
  Country: None (occurrence: None)
  Receive Date: 20090514
  Receipt Date: 20090506
  Transmission Date: 20091009
  Serious: Yes (Disabling, Other)
  Sender: FDA-Public Use
  Company Number: US-CELGENEUS-163-20785-09021359

PATIENT
  Sex: Male

DRUGS (4)
  1. THALOMID [Suspect]
     Indication: MULTIPLE MYELOMA
     Route: 048
     Dates: start: 20081229, end: 20090103
  2. DEXAMETHASONE 4MG TAB [Concomitant]
     Route: 065
     Dates: start: 20081206
  3. DOXIL [Concomitant]
     Route: 065
     Dates: start: 20081006
  4. VINCRISTINE [Concomitant]
     Route: 065
     Dates: start: 20081016

REACTIONS (9)
  - ADVERSE DRUG REACTION [None]
  - AORTIC DILATATION [None]
  - CHEST PAIN [None]
  - DYSPNOEA [None]
  - LEFT VENTRICULAR HYPERTROPHY [None]
  - NEUROPATHY PERIPHERAL [None]
  - OEDEMA PERIPHERAL [None]
  - RESPIRATORY TRACT CONGESTION [None]
  - SINUS BRADYCARDIA [None]
